FAERS Safety Report 5027716-0 (Version None)
Quarter: 2006Q2

REPORT INFORMATION
  Report Type: 
  Country: None (occurrence: None)
  Receive Date: 20060428
  Receipt Date: 20060223
  Transmission Date: 20061013
  Serious: No
  Sender: FDA-Public Use
  Company Number: COT_0413_2006

PATIENT
  Age: 82 Year
  Sex: Male
  Weight: 75.7507 kg

DRUGS (9)
  1. VENTAVIS [Suspect]
     Indication: PULMONARY HYPERTENSION
     Dosage: 2.5 MCG 5 TO 6X/DAY IH
     Dates: start: 20060110
  2. ASPIRIN [Concomitant]
  3. VITAMIN B-12 [Concomitant]
  4. ADVAIR DISKUS 100/50 [Concomitant]
  5. ATENOLOL [Concomitant]
  6. PRILOSEC [Concomitant]
  7. ZOCOR [Concomitant]
  8. SPIRIVA [Concomitant]
  9. OXYGEN [Concomitant]

REACTIONS (3)
  - COUGH [None]
  - NAUSEA [None]
  - VISUAL ACUITY REDUCED [None]
